FAERS Safety Report 22136066 (Version 1)
Quarter: 2023Q1

REPORT INFORMATION
  Report Type: Spontaneous
  Country: US (occurrence: None)
  Receive Date: 20230323
  Receipt Date: 20230323
  Transmission Date: 20230418
  Serious: No
  Sender: FDA-Public Use
  Company Number: None

PATIENT
  Age: 79 Year
  Sex: Female
  Weight: 84.82 kg

DRUGS (7)
  1. ABIRATERONE ACETATE [Suspect]
     Active Substance: ABIRATERONE ACETATE
     Indication: Prostate cancer
     Dosage: FREQUENCY : DAILY;?
     Route: 048
  2. ACTOS [Concomitant]
     Active Substance: PIOGLITAZONE HYDROCHLORIDE
  3. glucosamine Chondr 1500 Complx [Concomitant]
  4. METFORMIN HYDROCHLORIDE [Concomitant]
     Active Substance: METFORMIN HYDROCHLORIDE
  5. Multi For Him 50+ [Concomitant]
  6. SIMVASTATIN [Concomitant]
     Active Substance: SIMVASTATIN
  7. ULTRAM [Concomitant]
     Active Substance: TRAMADOL HYDROCHLORIDE

REACTIONS (1)
  - Hospice care [None]
